FAERS Safety Report 7590142-4 (Version None)
Quarter: 2011Q3

REPORT INFORMATION
  Report Type: 
  Country: None (occurrence: None)
  Receive Date: 20110705
  Receipt Date: 20110624
  Transmission Date: 20111222
  Serious: Yes (Other)
  Sender: FDA-Public Use
  Company Number: B0730627A

PATIENT
  Age: 58 Year
  Sex: Female
  Weight: 75.9 kg

DRUGS (20)
  1. DARUNAVIR ETHANOLATE [Suspect]
     Indication: HIV INFECTION
     Dosage: 1200MG PER DAY
     Dates: start: 20100616
  2. RALTEGRAVIR [Suspect]
     Indication: HIV INFECTION
     Dosage: 800MG PER DAY
     Dates: start: 20100616
  3. NASONEX [Concomitant]
     Dates: start: 20090804
  4. LEVOTHROID [Concomitant]
     Dates: start: 20090918
  5. DIOVAN [Concomitant]
     Dates: start: 20091117
  6. MARAVIROC [Suspect]
     Indication: HIV INFECTION
     Dosage: 300MG PER DAY
     Dates: start: 20100616
  7. METFORMIN HCL [Concomitant]
     Dates: start: 20080902
  8. JANUVIA [Concomitant]
     Dates: start: 20101105
  9. DRISDOL [Concomitant]
     Dates: start: 20101108
  10. ASPIRIN [Concomitant]
     Dates: start: 20080902
  11. PROPRANOLOL HYDROCHLORIDE [Concomitant]
     Dates: start: 20080902
  12. LISINOPRIL [Concomitant]
     Dates: start: 20090804
  13. LIPITOR [Concomitant]
     Dates: start: 20100402
  14. ALDACTONE [Concomitant]
     Dates: start: 20091117
  15. RITONAVIR [Suspect]
     Indication: HIV INFECTION
     Dosage: 200MG PER DAY
     Dates: start: 20100616
  16. NORVASC [Concomitant]
     Dates: start: 20080902
  17. MULTI-VITAMINS [Concomitant]
     Dates: start: 20080902
  18. ZETIA [Concomitant]
     Dates: start: 20080902
  19. ADVAIR DISKUS 100/50 [Concomitant]
     Dates: start: 20080311
  20. KLOR-CON [Concomitant]
     Dates: start: 20090918

REACTIONS (1)
  - PNEUMONIA [None]
